FAERS Safety Report 8195711-9 (Version None)
Quarter: 2012Q1

REPORT INFORMATION
  Report Type: 
  Country: None (occurrence: None)
  Receive Date: 20120308
  Receipt Date: 20120308
  Transmission Date: 20120608
  Serious: Yes (Other)
  Sender: FDA-Public Use
  Company Number: US-PFIZER INC-2012054943

PATIENT
  Sex: Female

DRUGS (22)
  1. LYRICA [Suspect]
     Dosage: 25 MG, 3X/DAY (1 PO TID)
     Route: 048
  2. PERIACTIN [Concomitant]
     Dosage: 4 MG, 2X/DAY
  3. SYNTHROID [Concomitant]
     Dosage: 75 MG, 1X/DAY (1 Q DAY)
  4. PRILOSEC [Concomitant]
     Dosage: 20 MG, UNK
  5. ACETYLSALICYLIC ACID [Concomitant]
     Dosage: 81 MG, 1X/DAY (1 PO Q DAY)
     Route: 048
  6. CORDARONE [Concomitant]
     Dosage: 200 MG, 2X/DAY
  7. MEGACE [Concomitant]
     Dosage: 80 MG, UNK
  8. LOVASTATIN [Concomitant]
     Dosage: 20 MG, 1X/DAY (1 PO Q DAY)
     Route: 048
  9. RESTORIL [Concomitant]
     Dosage: 15 MG, AS NEEDED (1 PO Q HS PRN)
     Route: 048
  10. ATENOLOL [Concomitant]
     Dosage: 25 MG, 1X/DAY (1 PO Q DAY)
     Route: 048
  11. LASIX [Concomitant]
     Dosage: 40 MG, 1X/DAY (1 Q DAY)
  12. TAMSULOSIN HYDROCHLORIDE [Concomitant]
     Dosage: 0.4 MG, 1X/DAY (1 PO Q DAY)
     Route: 048
  13. AVODART [Concomitant]
     Dosage: 0.5 MG, 1X/DAY (1 PO Q DAY)
     Route: 048
     Dates: end: 20111207
  14. NIACIN [Concomitant]
     Dosage: 500 MG, 2X/DAY
     Route: 048
  15. IMDUR [Concomitant]
     Dosage: 60 MG, 1X/DAY (1 PO Q DAY)
     Route: 048
  16. PLAVIX [Concomitant]
     Dosage: 75 MG, 1X/DAY (1 PO Q DAY)
     Route: 048
  17. NOVOLOG MIX 70/30 [Concomitant]
     Dosage: UNK (S/S BID)
  18. GLYBURIDE [Concomitant]
     Dosage: 5 MG, 2X/DAY
  19. MOBIC [Concomitant]
     Dosage: 15 MG, 1X/DAY (1 PO QD)
     Route: 048
  20. ZANTAC [Concomitant]
     Dosage: 150 MG, 2X/DAY (1 PO BID)
     Route: 048
  21. ASTELIN [Concomitant]
     Dosage: 137 UG, 1X/DAY (1 SEN Q DAY)
  22. MIRALAX [Concomitant]
     Dosage: UNK

REACTIONS (13)
  - GASTROOESOPHAGEAL REFLUX DISEASE [None]
  - RENAL FAILURE [None]
  - BENIGN PROSTATIC HYPERPLASIA [None]
  - NEUROPATHY PERIPHERAL [None]
  - FIBROSIS [None]
  - LIPIDS INCREASED [None]
  - TRANSIENT ISCHAEMIC ATTACK [None]
  - HYPOTHYROIDISM [None]
  - ESCHERICHIA INFECTION [None]
  - CARDIAC FAILURE CONGESTIVE [None]
  - POLYMYOSITIS [None]
  - ATRIAL FIBRILLATION [None]
  - NEPHROLITHIASIS [None]
